FAERS Safety Report 11757315 (Version 1)
Quarter: 2015Q4

REPORT INFORMATION
  Report Type: Report from Study
  Country: BR (occurrence: BR)
  Receive Date: 20151120
  Receipt Date: 20151120
  Transmission Date: 20160304
  Serious: Yes (Other)
  Sender: FDA-Public Use
  Company Number: PHHY2015BR151028

PATIENT
  Sex: Female
  Weight: 84 kg

DRUGS (1)
  1. SANDOSTATIN LAR DEPOT [Suspect]
     Active Substance: OCTREOTIDE ACETATE
     Indication: ACROMEGALY
     Dosage: 1 DF, QMO (ONCE A MONTH)
     Route: 065
     Dates: start: 2013

REACTIONS (5)
  - Laziness [Unknown]
  - Thrombosis [Recovered/Resolved]
  - Somnolence [Unknown]
  - Headache [Recovering/Resolving]
  - Sluggishness [Unknown]
